FAERS Safety Report 22036712 (Version 1)
Quarter: 2023Q1

REPORT INFORMATION
  Report Type: Spontaneous
  Country: FR (occurrence: FR)
  Receive Date: 20230225
  Receipt Date: 20230225
  Transmission Date: 20230418
  Serious: Yes (Death, Hospitalization, Other)
  Sender: FDA-Public Use
  Company Number: FR-AMGEN-FRASP2023029021

PATIENT
  Age: 66 Year
  Sex: Male
  Weight: 86 kg

DRUGS (3)
  1. ARANESP [Suspect]
     Active Substance: DARBEPOETIN ALFA
     Indication: Cutaneous T-cell lymphoma
     Dosage: 500 MICROGRAM, Q3WK
     Route: 058
     Dates: start: 202212
  2. ADCETRIS [Suspect]
     Active Substance: BRENTUXIMAB VEDOTIN
     Indication: Cutaneous T-cell lymphoma
     Dosage: 50 MILLIGRAM, Q3WK
     Route: 040
     Dates: start: 20220801, end: 20230105
  3. CEFIXIME [Concomitant]
     Active Substance: CEFIXIME
     Indication: Lung disorder
     Route: 048
     Dates: start: 20221223, end: 20221230

REACTIONS (2)
  - Dermatitis exfoliative generalised [Fatal]
  - Eosinophilia [Fatal]

NARRATIVE: CASE EVENT DATE: 20221102
